FAERS Safety Report 6059225-4 (Version None)
Quarter: 2009Q1

REPORT INFORMATION
  Report Type: 
  Country: None (occurrence: None)
  Receive Date: 20090130
  Receipt Date: 20090119
  Transmission Date: 20090719
  Serious: Yes (Other)
  Sender: FDA-Public Use
  Company Number: US-PFIZER INC-2009159735

PATIENT
  Sex: Female
  Weight: 113.38 kg

DRUGS (8)
  1. CHANTIX [Suspect]
     Indication: SMOKING CESSATION THERAPY
     Dosage: 0.5 MG, 1X/DAY
     Dates: start: 20090111
  2. LAMICTAL [Concomitant]
     Dosage: UNK
  3. ZOLOFT [Concomitant]
     Dosage: UNK
  4. ABILIFY [Concomitant]
     Dosage: UNK
  5. REQUIP [Concomitant]
     Dosage: UNK
  6. SINEMET [Concomitant]
     Dosage: UNK
  7. SYNTHROID [Concomitant]
     Dosage: UNK
  8. LASIX [Concomitant]
     Dosage: UNK

REACTIONS (3)
  - DEPRESSION [None]
  - FLUID RETENTION [None]
  - WEIGHT INCREASED [None]
